FAERS Safety Report 8615730-5 (Version None)
Quarter: 2012Q3

REPORT INFORMATION
  Report Type: 
  Country: None (occurrence: None)
  Receive Date: 20120823
  Receipt Date: 20120817
  Transmission Date: 20120928
  Serious: Yes (Hospitalization, Other)
  Sender: FDA-Public Use
  Company Number: JP-PFIZER INC-2012203589

PATIENT
  Age: 39 Year
  Sex: Female
  Weight: 60 kg

DRUGS (1)
  1. FOSPHENYTOIN SODIUM [Suspect]
     Indication: EPILEPSY
     Dosage: 1125 MG, 1X/DAY
     Route: 042
     Dates: start: 20120806, end: 20120806

REACTIONS (2)
  - CARDIAC ARREST [None]
  - ENCEPHALITIS [None]
